FAERS Safety Report 9157286 (Version 1)
Quarter: 2013Q1

REPORT INFORMATION
  Report Type: Report from Study
  Country: FR (occurrence: FR)
  Receive Date: 20130312
  Receipt Date: 20130312
  Transmission Date: 20140127
  Serious: Yes (Other)
  Sender: FDA-Public Use
  Company Number: FR-BRISTOL-MYERS SQUIBB COMPANY-17447673

PATIENT
  Age: 58 Year
  Sex: Female

DRUGS (1)
  1. DASATINIB [Suspect]
     Indication: CHRONIC MYELOID LEUKAEMIA
     Dosage: 20JUN-18JUL05:70MG INTR: 19JUL-16AUG05?17AUG05 REINTRODUCED:100MG/D INTR:10OCT05
     Dates: start: 20050523, end: 20061024

REACTIONS (2)
  - Platelet disorder [Unknown]
  - Rash [Unknown]
